FAERS Safety Report 24568303 (Version 2)
Quarter: 2025Q2

REPORT INFORMATION
  Report Type: Spontaneous
  Country: US (occurrence: US)
  Receive Date: 20241031
  Receipt Date: 20250421
  Transmission Date: 20250716
  Serious: Yes (Other)
  Sender: ARS PHARMACEUTICALS OPERATIONS, INC.
  Company Number: US-ARS PHARMACEUTICALS OPERATIONS, INC.-2024ARP00005

PATIENT
  Sex: Female

DRUGS (1)
  1. NEFFY [Suspect]
     Active Substance: EPINEPHRINE
     Indication: Food allergy
     Route: 045
     Dates: start: 20241017, end: 20241017

REACTIONS (3)
  - Syncope [Recovered/Resolved]
  - Drug ineffective [Recovered/Resolved]
  - Underdose [Recovered/Resolved]

NARRATIVE: CASE EVENT DATE: 20241017
